FAERS Safety Report 6306887-X (Version None)
Quarter: 2009Q3

REPORT INFORMATION
  Report Type: 
  Country: None (occurrence: None)
  Receive Date: 20090810
  Receipt Date: 20090731
  Transmission Date: 20100115
  Serious: Yes (Other)
  Sender: FDA-Public Use
  Company Number: 344730

PATIENT
  Age: 41 Year
  Sex: Male

DRUGS (3)
  1. DACARBAZINE [Suspect]
     Indication: METASTATIC MALIGNANT MELANOMA
     Dosage: 250 MG/M^2 ON DAYS 1-3 OF TREATMENT
  2. CISPLATIN [Suspect]
     Indication: METASTATIC MALIGNANT MELANOMA
     Dosage: 30 MG/M^2 ON DAYS 1-3 OF TREATMENT
  3. INTERFERON ALFA [Suspect]
     Indication: METASTATIC MALIGNANT MELANOMA
     Dosage: 10 MU/M2 ON DAYS 1-5 OF TREATMENT

REACTIONS (12)
  - ASCITES [None]
  - BLOOD BILIRUBIN INCREASED [None]
  - BLOOD CREATINE INCREASED [None]
  - BLOOD SODIUM DECREASED [None]
  - GENERAL PHYSICAL HEALTH DETERIORATION [None]
  - HAEMODIALYSIS [None]
  - HAEMOGLOBIN DECREASED [None]
  - OEDEMA PERIPHERAL [None]
  - OLIGURIA [None]
  - PLATELET COUNT DECREASED [None]
  - REFUSAL OF TREATMENT BY PATIENT [None]
  - TUMOUR LYSIS SYNDROME [None]
